FAERS Safety Report 10111274 (Version 1)
Quarter: 2014Q2

REPORT INFORMATION
  Report Type: Spontaneous
  Country: US (occurrence: None)
  Receive Date: 20140421
  Receipt Date: 20140421
  Transmission Date: 20141212
  Serious: Yes (Other)
  Sender: FDA-Public Use
  Company Number: AEGR000244

PATIENT
  Age: 70 Year
  Sex: Female
  Weight: 101.1 kg

DRUGS (21)
  1. JUXTAPID (LOMITAPIDE) CAPSULE, 5MG [Suspect]
     Indication: HYPERLIPIDAEMIA
     Route: 048
     Dates: start: 20131009, end: 2013
  2. REMICADE (INFLIXIMAB) [Concomitant]
  3. ADVAIR (FLUTICASONE PROPIONATE, SALMETEROL XINAFOATE) [Concomitant]
  4. AMLODIPINE (AMLODIPINE BESILATE) [Concomitant]
  5. CALCIUM (CALCIUM) [Concomitant]
  6. COREG (CARVEDILOL) [Concomitant]
  7. COUMADIN (WARFARIN SODIUM) [Concomitant]
  8. FISH OIL (FISH OIL) [Concomitant]
  9. FLAXSEED OIL (FLAXSEED OIL) [Concomitant]
  10. FLEXERIL (CYCLOBENZAPRINE HYDROCHLORIDE) [Concomitant]
  11. FOLIC ACID (FOLIC ACID) [Concomitant]
  12. FUROSEMIDE (FUROSEMIDE) [Concomitant]
  13. GARLIC (GARLIC) [Concomitant]
  14. GLIPIZIDE (GLIPIZIDE) [Concomitant]
  15. METFORMIN HCL (METFORMIN HYDROCHLORIDE) [Concomitant]
  16. METHOTREXATE SODIUM (METHOTREXATE SODIUM) [Concomitant]
  17. PREDNISONE (PREDNISONE) [Concomitant]
  18. PROAIR (SALBUTAMOL SULFATE) [Concomitant]
  19. SPIRONOLACTONE (SPIRONOLACTONE) [Concomitant]
  20. VITAMIN D (COLECALCIFEROL) [Concomitant]
  21. VENLAFAXINE (VENLAFAXINE HYDROCHLORIDE) [Concomitant]

REACTIONS (7)
  - Nausea [None]
  - Malaise [None]
  - Arthralgia [None]
  - Myalgia [None]
  - Off label use [None]
  - Inappropriate schedule of drug administration [None]
  - Hepatic enzyme increased [None]
